FAERS Safety Report 7500756-5 (Version None)
Quarter: 2011Q2

REPORT INFORMATION
  Report Type: 
  Country: None (occurrence: None)
  Receive Date: 20110524
  Receipt Date: 20110520
  Transmission Date: 20111010
  Serious: Yes (Hospitalization)
  Sender: FDA-Public Use
  Company Number: HU-ABBOTT-11P-076-0727459-00

PATIENT
  Sex: Female
  Weight: 80.2 kg

DRUGS (9)
  1. RAMIPRIL [Concomitant]
     Indication: PRODUCT USED FOR UNKNOWN INDICATION
     Route: 048
     Dates: start: 20100125
  2. ZEMPLAR [Suspect]
     Indication: RENAL FAILURE CHRONIC
     Dosage: 5MCG/ML, WITH DIALYSIS
     Route: 042
     Dates: start: 20110112
  3. FAMOTIDINE [Concomitant]
     Indication: PRODUCT USED FOR UNKNOWN INDICATION
     Dosage: 60MG DAILY, 3X20MG
     Route: 048
     Dates: start: 20110125
  4. SEVELAMER [Concomitant]
     Indication: PRODUCT USED FOR UNKNOWN INDICATION
     Dosage: 7200MG 3X(3X800MG)
     Route: 048
     Dates: start: 20100205
  5. CHINOTAL [Concomitant]
     Indication: PRODUCT USED FOR UNKNOWN INDICATION
     Dosage: 800MG DAILY, 2X400MG
     Route: 048
     Dates: start: 20100125, end: 20110520
  6. PENTOXIFYLLINE [Concomitant]
     Indication: PRODUCT USED FOR UNKNOWN INDICATION
     Dosage: DAILY
     Route: 042
     Dates: start: 20110520
  7. SILYMARIN [Concomitant]
     Indication: PRODUCT USED FOR UNKNOWN INDICATION
     Dosage: 2X
     Route: 048
     Dates: start: 20100125
  8. ZEMPLAR [Suspect]
     Dosage: WITH DIALYSIS
     Route: 042
  9. CINACALCET HYDROCHLORIDE [Concomitant]
     Indication: PRODUCT USED FOR UNKNOWN INDICATION
     Route: 048
     Dates: start: 20100125

REACTIONS (2)
  - VERTIGO [None]
  - PAIN IN EXTREMITY [None]
